FAERS Safety Report 6416525-3 (Version None)
Quarter: 2009Q4

REPORT INFORMATION
  Report Type: 
  Country: None (occurrence: None)
  Receive Date: 20091027
  Receipt Date: 20091022
  Transmission Date: 20100525
  Serious: Yes (Life-Threatening, Other)
  Sender: FDA-Public Use
  Company Number: PHEH2009US13048

PATIENT
  Sex: Male

DRUGS (1)
  1. EXJADE [Suspect]
     Dosage: 1500 UNK DAILY
     Route: 048
     Dates: start: 20090623, end: 20090812

REACTIONS (2)
  - MALIGNANT NEOPLASM PROGRESSION [None]
  - TERMINAL STATE [None]
